FAERS Safety Report 6697517-6 (Version None)
Quarter: 2010Q2

REPORT INFORMATION
  Report Type: 
  Country: None (occurrence: None)
  Receive Date: 20100426
  Receipt Date: 20100408
  Transmission Date: 20101027
  Serious: Yes (Other)
  Sender: FDA-Public Use
  Company Number: TH-AMGEN-QUU407779

PATIENT
  Age: 37 Year
  Sex: Female

DRUGS (2)
  1. NEUPOGEN [Suspect]
     Indication: DRUG USE FOR UNKNOWN INDICATION
     Dates: start: 20100324, end: 20100325
  2. ELTROXIN [Concomitant]

REACTIONS (2)
  - HEADACHE [None]
  - VISION BLURRED [None]
